FAERS Safety Report 14026766 (Version 6)
Quarter: 2018Q2

REPORT INFORMATION
  Report Type: Report from Study
  Country: US (occurrence: US)
  Receive Date: 20170929
  Receipt Date: 20180611
  Transmission Date: 20180711
  Serious: Yes (Other)
  Sender: FDA-Public Use
  Company Number: US-JAZZ-2016-US-023899

PATIENT
  Age: 42 Year
  Sex: Female
  Weight: 53.52 kg

DRUGS (37)
  1. SEROQUEL [Concomitant]
     Active Substance: QUETIAPINE FUMARATE
  2. BENZTROPINE. [Concomitant]
     Active Substance: BENZTROPINE
  3. XYREM [Suspect]
     Active Substance: SODIUM OXYBATE
     Dosage: 3 G, TID
     Route: 048
     Dates: start: 201701
  4. TRAZODONE [Suspect]
     Active Substance: TRAZODONE HYDROCHLORIDE
     Indication: SLEEP DISORDER
     Dosage: 100 MG, QD
  5. XANAX [Concomitant]
     Active Substance: ALPRAZOLAM
  6. AMANTADINE. [Concomitant]
     Active Substance: AMANTADINE HYDROCHLORIDE
  7. LYRICA [Concomitant]
     Active Substance: PREGABALIN
  8. SODIUM CHLORIDE. [Concomitant]
     Active Substance: SODIUM CHLORIDE
  9. BIOTIN [Concomitant]
     Active Substance: BIOTIN
  10. KLONOPIN [Concomitant]
     Active Substance: CLONAZEPAM
     Indication: HEART RATE DECREASED
  11. OXYCODONE [Concomitant]
     Active Substance: OXYCODONE
     Indication: PAIN
  12. REMERON [Suspect]
     Active Substance: MIRTAZAPINE
     Indication: SLEEP DISORDER
  13. CYMBALTA [Concomitant]
     Active Substance: DULOXETINE HYDROCHLORIDE
  14. OXYCODONE HYDROCHLORIDE. [Concomitant]
     Active Substance: OXYCODONE HYDROCHLORIDE
  15. TEMAZEPAM. [Concomitant]
     Active Substance: TEMAZEPAM
  16. OXYCONTIN [Concomitant]
     Active Substance: OXYCODONE HYDROCHLORIDE
  17. SOMA [Concomitant]
     Active Substance: CARISOPRODOL
  18. XYREM [Suspect]
     Active Substance: SODIUM OXYBATE
     Indication: NARCOLEPSY
     Dosage: 2.25 G, BID
     Route: 048
     Dates: start: 201605, end: 201605
  19. FLUORODEOXYGLUCOSE 18F [Concomitant]
  20. HALOPERIDOL DECAN [Concomitant]
  21. KLONOPIN [Concomitant]
     Active Substance: CLONAZEPAM
     Indication: ANXIETY
  22. XYREM [Suspect]
     Active Substance: SODIUM OXYBATE
     Dosage: 3 G QD OR BID
     Route: 048
  23. FOLIC ACID. [Concomitant]
     Active Substance: FOLIC ACID
  24. MELATONIN [Concomitant]
     Active Substance: MELATONIN
  25. NICORETTE [Concomitant]
     Active Substance: NICOTINE
  26. SONATA                             /00061001/ [Concomitant]
     Active Substance: CARISOPRODOL
  27. TIZANIDINE. [Concomitant]
     Active Substance: TIZANIDINE
     Indication: MUSCLE RELAXANT THERAPY
  28. VITAMIN B12 [Concomitant]
     Active Substance: CYANOCOBALAMIN
  29. LIDOCAINE. [Concomitant]
     Active Substance: LIDOCAINE
  30. FENTANYL. [Concomitant]
     Active Substance: FENTANYL
  31. COLLAGEN [Suspect]
     Active Substance: COLLAGEN
     Indication: PRODUCT USED FOR UNKNOWN INDICATION
  32. VITAMIN D3 [Concomitant]
     Active Substance: CHOLECALCIFEROL
  33. CORTEF [Concomitant]
     Active Substance: HYDROCORTISONE
  34. LEVOTHYROXINE. [Concomitant]
     Active Substance: LEVOTHYROXINE
  35. TOPAMAX [Concomitant]
     Active Substance: TOPIRAMATE
  36. XYREM [Suspect]
     Active Substance: SODIUM OXYBATE
     Indication: CATAPLEXY
     Dosage: DOSE ADJUSTMENT
     Route: 048
     Dates: start: 201605, end: 201701
  37. CYANOCOBALAMIN. [Concomitant]
     Active Substance: CYANOCOBALAMIN

REACTIONS (18)
  - Fatigue [Unknown]
  - Collagen disorder [Unknown]
  - Road traffic accident [Unknown]
  - Food craving [Not Recovered/Not Resolved]
  - Therapeutic response unexpected [Unknown]
  - Abnormal sensation in eye [Not Recovered/Not Resolved]
  - Heart rate increased [Recovered/Resolved]
  - Stress [Not Recovered/Not Resolved]
  - Insomnia [Unknown]
  - Dyspepsia [Recovering/Resolving]
  - Feeling abnormal [Unknown]
  - Memory impairment [Not Recovered/Not Resolved]
  - Blood pressure increased [Unknown]
  - Drug dose omission [Unknown]
  - Loss of consciousness [Recovered/Resolved]
  - Drug ineffective [Unknown]
  - Thinking abnormal [Not Recovered/Not Resolved]
  - Pre-existing condition improved [Unknown]

NARRATIVE: CASE EVENT DATE: 201612
